FAERS Safety Report 7630575-0 (Version None)
Quarter: 2011Q3

REPORT INFORMATION
  Report Type: 
  Country: None (occurrence: None)
  Receive Date: 20110722
  Receipt Date: 20110718
  Transmission Date: 20111222
  Serious: Yes (Death, Hospitalization)
  Sender: FDA-Public Use
  Company Number: US-ELI_LILLY_AND_COMPANY-US201104003558

PATIENT
  Sex: Male
  Weight: 61 kg

DRUGS (5)
  1. CARBOPLATIN [Concomitant]
  2. VITAMIN B-12 [Concomitant]
  3. ALIMTA [Suspect]
     Dosage: 865 MG, UNK
     Route: 042
     Dates: start: 20110318
  4. FOLIC ACID [Concomitant]
  5. ALIMTA [Suspect]
     Indication: LUNG NEOPLASM MALIGNANT
     Dosage: 895 MG, UNK
     Route: 042
     Dates: start: 20110226

REACTIONS (7)
  - CONSTIPATION [None]
  - NEOPLASM PROGRESSION [None]
  - ORAL CANDIDIASIS [None]
  - DYSPNOEA [None]
  - NEUTROPENIC SEPSIS [None]
  - PERIPHERAL VASCULAR DISORDER [None]
  - PANCYTOPENIA [None]
